FAERS Safety Report 6911039-6 (Version None)
Quarter: 2010Q3

REPORT INFORMATION
  Report Type: 
  Country: None (occurrence: None)
  Receive Date: 20100806
  Receipt Date: 20100729
  Transmission Date: 20110219
  Serious: Yes (Hospitalization, Congenital Anomaly)
  Sender: FDA-Public Use
  Company Number: B0653300A

PATIENT
  Sex: Female
  Weight: 3.1 kg

DRUGS (4)
  1. PAXIL [Suspect]
     Indication: DEPRESSION
     Dosage: 10MG PER DAY
     Dates: start: 20090317, end: 20090727
  2. LORAZEPAM [Suspect]
     Indication: DEPRESSION
     Dosage: 1MG PER DAY
     Dates: start: 20090318, end: 20090727
  3. TALION [Suspect]
     Indication: URTICARIA CHRONIC
     Dosage: 20MG PER DAY
     Dates: end: 20090727
  4. TAVEGYL [Suspect]
     Indication: ASTHMA
     Dosage: 1MG PER DAY
     Dates: start: 20090616, end: 20090727

REACTIONS (2)
  - CRYPTOPHTHALMOS [None]
  - DRUG EXPOSURE DURING PREGNANCY [None]
